FAERS Safety Report 9736099 (Version 1)
Quarter: 2013Q4

REPORT INFORMATION
  Report Type: Spontaneous
  Country: FR (occurrence: FR)
  Receive Date: 20131206
  Receipt Date: 20131206
  Transmission Date: 20140711
  Serious: Yes (Life-Threatening, Hospitalization)
  Sender: FDA-Public Use
  Company Number: FR-GLAXOSMITHKLINE-B0950241A

PATIENT
  Age: 55 Year
  Sex: Male

DRUGS (8)
  1. ARIXTRA [Suspect]
     Indication: PULMONARY EMBOLISM
     Dosage: 10MG PER DAY
     Route: 058
     Dates: start: 201309, end: 20131025
  2. BRILIQUE [Suspect]
     Indication: MYOCARDIAL INFARCTION
     Dosage: 90MG TWICE PER DAY
     Route: 048
     Dates: start: 201306
  3. SINTROM [Suspect]
     Indication: PULMONARY EMBOLISM
     Dosage: 4MG PER DAY
     Route: 048
     Dates: start: 20131018, end: 20131025
  4. PREVISCAN (FLUINDIONE) [Suspect]
     Indication: PULMONARY EMBOLISM
     Dates: start: 201309, end: 20131018
  5. COKENZEN [Concomitant]
  6. CRESTOR [Concomitant]
  7. METFORMIN [Concomitant]
  8. NEBIVOLOL [Concomitant]

REACTIONS (5)
  - Rectal haemorrhage [Recovered/Resolved]
  - Anaemia [Recovering/Resolving]
  - Pallor [Unknown]
  - International normalised ratio abnormal [Recovered/Resolved]
  - Incorrect drug administration duration [Unknown]
